FAERS Safety Report 7573520-9 (Version None)
Quarter: 2011Q2

REPORT INFORMATION
  Report Type: 
  Country: None (occurrence: None)
  Receive Date: 20110627
  Receipt Date: 20110623
  Transmission Date: 20111010
  Serious: Yes (Death)
  Sender: FDA-Public Use
  Company Number: PHHY2011HU55512

PATIENT
  Sex: Female

DRUGS (1)
  1. LETROZOLE [Suspect]
     Indication: BREAST CANCER

REACTIONS (1)
  - DEATH [None]
